FAERS Safety Report 23454826 (Version 2)
Quarter: 2024Q1

REPORT INFORMATION
  Report Type: Spontaneous
  Country: IT (occurrence: IT)
  Receive Date: 20240130
  Receipt Date: 20240219
  Transmission Date: 20240410
  Serious: Yes (Other)
  Sender: FDA-Public Use
  Company Number: IT-AMGEN-ITASP2024014638

PATIENT

DRUGS (6)
  1. ADALIMUMAB [Suspect]
     Active Substance: ADALIMUMAB\ISOPROPYL ALCOHOL
     Indication: Colitis ulcerative
     Dosage: UNK
     Route: 065
  2. INFLIXIMAB [Concomitant]
     Active Substance: INFLIXIMAB
     Indication: Colitis ulcerative
     Dosage: UNK
     Route: 065
  3. GOLIMUMAB [Concomitant]
     Active Substance: GOLIMUMAB
     Indication: Colitis ulcerative
     Dosage: UNK
     Route: 065
  4. VEDOLIZUMAB [Concomitant]
     Active Substance: VEDOLIZUMAB
     Indication: Colitis ulcerative
     Dosage: UNK
     Route: 065
  5. TOFACITINIB [Concomitant]
     Active Substance: TOFACITINIB
     Indication: Colitis ulcerative
     Dosage: 10 MILLIGRAM, BID
     Route: 065
  6. TOFACITINIB [Concomitant]
     Active Substance: TOFACITINIB
     Dosage: 5 MILLIGRAM, BID
     Route: 065

REACTIONS (2)
  - Colorectal cancer [Unknown]
  - Treatment failure [Unknown]
